FAERS Safety Report 25849878 (Version 1)
Quarter: 2025Q3

REPORT INFORMATION
  Report Type: Spontaneous
  Country: EU (occurrence: EU)
  Receive Date: 20250926
  Receipt Date: 20250926
  Transmission Date: 20251021
  Serious: Yes (Other)
  Sender: AUROBINDO
  Company Number: EU-AFSSAPS-PB2025001099

PATIENT
  Age: 79 Year
  Sex: Female

DRUGS (3)
  1. OLANZAPINE [Suspect]
     Active Substance: OLANZAPINE
     Indication: Bipolar disorder
     Dosage: 5 MILLIGRAM, ONCE A DAY (DOSE PROGRESSIVE DE 5 ? 20 MG)
     Route: 048
     Dates: start: 20250729, end: 20250810
  2. OLANZAPINE [Suspect]
     Active Substance: OLANZAPINE
     Dosage: 20 MILLIGRAM, ONCE A DAY (DOSE PROGRESSIVE DE 5 ? 20 MG)
     Route: 048
     Dates: start: 20250811, end: 20250815
  3. LOXAPINE [Suspect]
     Active Substance: LOXAPINE
     Indication: Anxiety
     Dosage: 4.5 MILLIGRAM, ONCE A DAY
     Route: 048
     Dates: start: 20250729, end: 20250815

REACTIONS (2)
  - Hepatic cytolysis [Recovering/Resolving]
  - Blood alkaline phosphatase increased [Recovering/Resolving]

NARRATIVE: CASE EVENT DATE: 20250815
